FAERS Safety Report 6424080-7 (Version None)
Quarter: 2009Q4

REPORT INFORMATION
  Report Type: 
  Country: None (occurrence: None)
  Receive Date: 20091102
  Receipt Date: 20091016
  Transmission Date: 20100525
  Serious: Yes (Hospitalization)
  Sender: FDA-Public Use
  Company Number: PHHO2009US12926

PATIENT
  Sex: Male
  Weight: 66.1 kg

DRUGS (12)
  1. RAD 666 RAD+TAB [Suspect]
     Indication: NEUROENDOCRINE CARCINOMA
     Dosage: 10 MG, BID
     Route: 048
     Dates: start: 20090806
  2. RAD 666 RAD+TAB [Suspect]
     Dosage: 5 MG, QD
     Route: 048
     Dates: end: 20091001
  3. SORAFENIB COMP-SORA+TAB [Suspect]
     Indication: NEUROENDOCRINE CARCINOMA
     Dosage: 200 MG, BID
     Route: 048
     Dates: start: 20090806, end: 20091001
  4. ACETYLSALICYLIC ACID [Concomitant]
  5. ATENOLOL [Concomitant]
  6. DESOWEN [Concomitant]
  7. IMODIUM [Concomitant]
  8. LISINOPRIL [Concomitant]
  9. M.V.I. [Concomitant]
  10. OMEGA [Concomitant]
  11. PANCRELIPASE [Concomitant]
  12. PRAVASTATIN [Concomitant]

REACTIONS (6)
  - ABDOMINAL PAIN [None]
  - DRUG ADMINISTRATION ERROR [None]
  - HYPERTENSION [None]
  - MALIGNANT NEOPLASM PROGRESSION [None]
  - SINUS BRADYCARDIA [None]
  - THROMBOCYTOPENIA [None]
